FAERS Safety Report 9701519 (Version 1)
Quarter: 2013Q4

REPORT INFORMATION
  Report Type: Report from Study
  Country: US (occurrence: US)
  Receive Date: 20131121
  Receipt Date: 20131121
  Transmission Date: 20140711
  Serious: Yes (Hospitalization)
  Sender: FDA-Public Use
  Company Number: US-NAPPMUNDI-USA-2013-0108605

PATIENT
  Age: 60 Year
  Sex: Male

DRUGS (1)
  1. OXY CR TAB [Suspect]
     Indication: BACK PAIN
     Dosage: 60 MG, TID
     Route: 048
     Dates: start: 20131017

REACTIONS (1)
  - Pneumonia [Recovered/Resolved]
